FAERS Safety Report 6105565-X (Version None)
Quarter: 2009Q1

REPORT INFORMATION
  Report Type: 
  Country: None (occurrence: None)
  Receive Date: 20090304
  Receipt Date: 20090304
  Transmission Date: 20090719
  Serious: No
  Sender: FDA-Public Use
  Company Number: None

PATIENT
  Age: 40 Year
  Sex: Female
  Weight: 56.6996 kg

DRUGS (2)
  1. AVELOX [Suspect]
     Indication: COUGH
     Dosage: 400MG 1 PILL 1/DAY PO
     Route: 048
     Dates: start: 20090227, end: 20090302
  2. AVELOX [Suspect]
     Indication: SINUSITIS
     Dosage: 400MG 1 PILL 1/DAY PO
     Route: 048
     Dates: start: 20090227, end: 20090302

REACTIONS (9)
  - ABDOMINAL PAIN [None]
  - ARTHRALGIA [None]
  - DIZZINESS [None]
  - DYSGEUSIA [None]
  - GROIN PAIN [None]
  - HYPOPHAGIA [None]
  - MALAISE [None]
  - NAUSEA [None]
  - PAIN IN EXTREMITY [None]
